FAERS Safety Report 8572745-3 (Version None)
Quarter: 2012Q3

REPORT INFORMATION
  Report Type: 
  Country: None (occurrence: None)
  Receive Date: 20120806
  Receipt Date: 20120731
  Transmission Date: 20120928
  Serious: Yes (Life-Threatening, Other)
  Sender: FDA-Public Use
  Company Number: US-PFIZER INC-2012186121

PATIENT
  Age: 45 Year
  Sex: Female

DRUGS (3)
  1. NEURONTIN [Suspect]
     Dosage: 600 MG, 3X/DAY, 5AM/11AM/11PM
  2. XANAX [Suspect]
     Dosage: 0.5 MG, 2X/DAY (EVERY 12HRS 8AM/8PM)
  3. NEURONTIN [Suspect]
     Dosage: 800 MG, 1X/DAY, 5PM

REACTIONS (3)
  - INJURY [None]
  - IMPAIRED WORK ABILITY [None]
  - ROAD TRAFFIC ACCIDENT [None]
